FAERS Safety Report 18985592 (Version 1)
Quarter: 2021Q1

REPORT INFORMATION
  Report Type: Spontaneous
  Country: JP (occurrence: JP)
  Receive Date: 20210309
  Receipt Date: 20210309
  Transmission Date: 20210420
  Serious: Yes (Other)
  Sender: FDA-Public Use
  Company Number: JP-PFIZER INC-2021231789

PATIENT

DRUGS (1)
  1. SOLU?CORTEF [Suspect]
     Active Substance: HYDROCORTISONE SODIUM SUCCINATE
     Indication: IMAGING PROCEDURE

REACTIONS (3)
  - Abdominal pain upper [Recovered/Resolved]
  - Off label use [Unknown]
  - Anaphylactic shock [Unknown]
